FAERS Safety Report 26005662 (Version 1)
Quarter: 2025Q4

REPORT INFORMATION
  Report Type: Spontaneous
  Country: EU (occurrence: EU)
  Receive Date: 20251106
  Receipt Date: 20251106
  Transmission Date: 20260117
  Serious: Yes (Hospitalization)
  Sender: AUROBINDO
  Company Number: EU-AFSSAPS-GR2025001604

PATIENT
  Age: 33 Year
  Sex: Female
  Weight: 50 kg

DRUGS (3)
  1. CARBOPLATIN [Suspect]
     Active Substance: CARBOPLATIN
     Indication: Endometrial adenocarcinoma
     Dosage: 495 MILLIGRAM (AUC 5)
     Route: 042
     Dates: start: 20250701, end: 20250701
  2. PACLITAXEL [Suspect]
     Active Substance: PACLITAXEL
     Indication: Endometrial adenocarcinoma
     Dosage: 175 MILLIGRAM/SQ. METER
     Route: 042
     Dates: start: 20250701, end: 20250701
  3. JEMPERLI [Concomitant]
     Active Substance: DOSTARLIMAB-GXLY
     Indication: Endometrial adenocarcinoma
     Dosage: 500 MILLIGRAM
     Route: 042
     Dates: start: 20250701, end: 20250701

REACTIONS (3)
  - Dermatitis allergic [Recovering/Resolving]
  - Cheilitis [Recovering/Resolving]
  - Skin test positive [Recovered/Resolved]

NARRATIVE: CASE EVENT DATE: 20250708
